FAERS Safety Report 11135821 (Version 2)
Quarter: 2016Q2

REPORT INFORMATION
  Report Type: Report from Study
  Country: US (occurrence: US)
  Receive Date: 20150526
  Receipt Date: 20160516
  Transmission Date: 20160815
  Serious: No
  Sender: FDA-Public Use
  Company Number: US-MALLINCKRODT-T201501961

PATIENT
  Sex: Male

DRUGS (5)
  1. REPOSITORY CORTICOTROPIN INJECTION [Suspect]
     Active Substance: CORTICOTROPIN
     Dosage: 40 UNITS, TWICE WKLY
     Route: 058
  2. REPOSITORY CORTICOTROPIN INJECTION [Suspect]
     Active Substance: CORTICOTROPIN
     Indication: GLOMERULONEPHRITIS MEMBRANOPROLIFERATIVE
     Dosage: 80 UNITS, TWICE WKLY
     Route: 058
     Dates: start: 20140501
  3. PREDNISONE. [Suspect]
     Active Substance: PREDNISONE
     Indication: GLOMERULONEPHRITIS MEMBRANOPROLIFERATIVE
     Dosage: UNK DOSE/FREQUENCY
     Route: 065
     Dates: end: 20140501
  4. REPOSITORY CORTICOTROPIN INJECTION [Suspect]
     Active Substance: CORTICOTROPIN
     Dosage: 20 UNITS EVERY OTHER WEEK (WED)
     Route: 058
     Dates: start: 20140422
  5. CYTOXAN [Suspect]
     Active Substance: CYCLOPHOSPHAMIDE
     Indication: GLOMERULONEPHRITIS MEMBRANOPROLIFERATIVE
     Dosage: UNK DOSE/FREQUENCY
     Route: 065
     Dates: end: 20140501

REACTIONS (5)
  - Blood glucose increased [Recovered/Resolved]
  - Vision blurred [Recovering/Resolving]
  - Arthralgia [Recovering/Resolving]
  - Irritability [Recovering/Resolving]
  - Blood pressure increased [Unknown]
